FAERS Safety Report 23766179 (Version 1)
Quarter: 2024Q2

REPORT INFORMATION
  Report Type: Spontaneous
  Country: US (occurrence: US)
  Receive Date: 20240422
  Receipt Date: 20240422
  Transmission Date: 20240715
  Serious: Yes (Other)
  Sender: FDA-Public Use
  Company Number: US-GSK-US2024AMR048343

PATIENT

DRUGS (1)
  1. BENLYSTA [Suspect]
     Active Substance: BELIMUMAB
     Indication: Systemic lupus erythematosus
     Dosage: UNK
     Route: 058
     Dates: start: 201104

REACTIONS (7)
  - Lupus encephalitis [Not Recovered/Not Resolved]
  - Cerebrospinal fluid leakage [Unknown]
  - Endodontic procedure [Unknown]
  - Central nervous system lesion [Unknown]
  - Lumbar puncture [Unknown]
  - Nausea [Unknown]
  - Headache [Unknown]

NARRATIVE: CASE EVENT DATE: 20220901
